FAERS Safety Report 4703654-5 (Version None)
Quarter: 2005Q2

REPORT INFORMATION
  Report Type: 
  Country: None (occurrence: None)
  Receive Date: 20050208
  Receipt Date: 20050208
  Transmission Date: 20051028
  Serious: No
  Sender: FDA-Public Use
  Company Number: None

PATIENT
  Age: 85 Year
  Sex: Female

DRUGS (1)
  1. ATROVENT [Suspect]

REACTIONS (3)
  - DRUG EFFECT DECREASED [None]
  - NASAL DISORDER [None]
  - PHARMACEUTICAL PRODUCT COMPLAINT [None]
